FAERS Safety Report 4614690-1 (Version None)
Quarter: 2005Q2

REPORT INFORMATION
  Report Type: 
  Country: None (occurrence: None)
  Receive Date: 20050311
  Receipt Date: 20050120
  Transmission Date: 20051028
  Serious: No
  Sender: FDA-Public Use
  Company Number: 2005-BP-01151BP

PATIENT
  Sex: Female

DRUGS (5)
  1. SPIRIVA [Suspect]
     Indication: CHRONIC OBSTRUCTIVE PULMONARY DISEASE
     Dosage: 18 MCG (18 MCG), IH
     Route: 055
     Dates: start: 20041001
  2. SPIRIVA [Suspect]
  3. ALBUTEROL [Concomitant]
  4. TAMOXIFEN (TAMOXIFEN) [Concomitant]
  5. ZYRTEC [Concomitant]

REACTIONS (3)
  - DYSPNOEA EXACERBATED [None]
  - FEELING JITTERY [None]
  - NERVOUSNESS [None]
